FAERS Safety Report 5969134-4 (Version None)
Quarter: 2008Q4

REPORT INFORMATION
  Report Type: 
  Country: None (occurrence: None)
  Receive Date: 20081126
  Receipt Date: 20081121
  Transmission Date: 20090506
  Serious: Yes (Hospitalization, Other)
  Sender: FDA-Public Use
  Company Number: US-BAXTER-2008BH012084

PATIENT
  Age: 82 Year
  Sex: Male

DRUGS (1)
  1. DIANEAL [Suspect]
     Indication: RENAL FAILURE CHRONIC
     Route: 033
     Dates: start: 20060816, end: 20081101

REACTIONS (5)
  - ACCIDENTAL POISONING [None]
  - CONFUSIONAL STATE [None]
  - DIPLOPIA [None]
  - MENTAL STATUS CHANGES [None]
  - TRANSIENT ISCHAEMIC ATTACK [None]
